FAERS Safety Report 8182861-6 (Version None)
Quarter: 2012Q1

REPORT INFORMATION
  Report Type: 
  Country: None (occurrence: None)
  Receive Date: 20120305
  Receipt Date: 20120228
  Transmission Date: 20120608
  Serious: Yes (Other)
  Sender: FDA-Public Use
  Company Number: US-AMGEN-USASP2012013008

PATIENT
  Sex: Female

DRUGS (1)
  1. PROLIA [Suspect]
     Indication: OSTEOPOROSIS POSTMENOPAUSAL

REACTIONS (8)
  - PRURITUS [None]
  - SWELLING FACE [None]
  - RASH MACULAR [None]
  - ADVERSE DRUG REACTION [None]
  - SKIN EXFOLIATION [None]
  - TENDERNESS [None]
  - DRY SKIN [None]
  - RASH [None]
